FAERS Safety Report 8611943 (Version 2)
Quarter: 2014Q1

REPORT INFORMATION
  Report Type: Spontaneous
  Country: US (occurrence: US)
  Receive Date: 20120613
  Receipt Date: 20140205
  Transmission Date: 20141002
  Serious: No
  Sender: FDA-Public Use
  Company Number: US-ASTRAZENECA-2012SE36045

PATIENT
  Age: 44 Year
  Sex: Female
  Weight: 90.3 kg

DRUGS (9)
  1. NEXIUM [Suspect]
     Indication: DYSPEPSIA
     Route: 048
     Dates: start: 2003, end: 2008
  2. PROTONIX [Concomitant]
     Indication: DYSPEPSIA
  3. DEXILANT [Concomitant]
     Indication: DYSPEPSIA
     Dosage: ONCE DAILY
  4. ZANTAC OTC [Concomitant]
     Dosage: AS NEEDED
  5. MYLANTA [Concomitant]
     Dosage: AS NEEDED
  6. ATENOLOL [Concomitant]
     Indication: HYPERTENSION
  7. CYMBALTA [Concomitant]
     Indication: DEPRESSION
  8. APIDRA [Concomitant]
  9. LANTUS [Concomitant]

REACTIONS (3)
  - Osteoporosis [Unknown]
  - Lower limb fracture [Unknown]
  - Patella fracture [Unknown]
